FAERS Safety Report 11658499 (Version 1)
Quarter: 2015Q4

REPORT INFORMATION
  Report Type: Spontaneous
  Country: CN (occurrence: CN)
  Receive Date: 20151026
  Receipt Date: 20151026
  Transmission Date: 20160304
  Serious: Yes (Other)
  Sender: FDA-Public Use
  Company Number: CN-ROCHE-1649691

PATIENT
  Age: 72 Year
  Sex: Male
  Weight: 35 kg

DRUGS (6)
  1. OFLOXACIN. [Concomitant]
     Active Substance: OFLOXACIN
     Route: 041
     Dates: start: 20150503, end: 20150512
  2. CEFOPERAZONE SODIUM [Concomitant]
     Active Substance: CEFOPERAZONE SODIUM
     Route: 041
     Dates: start: 20150503, end: 20150513
  3. SODIUM CHLORIDE. [Concomitant]
     Active Substance: SODIUM CHLORIDE
     Route: 041
     Dates: start: 20150513, end: 20150517
  4. ORNIDAZOLE [Concomitant]
     Active Substance: ORNIDAZOLE
     Route: 041
     Dates: start: 20150513, end: 20150517
  5. ROCEPHIN [Suspect]
     Active Substance: CEFTRIAXONE SODIUM
     Indication: LUNG INFECTION
     Route: 041
     Dates: start: 20150514, end: 20150517
  6. TAZOBACTAM [Concomitant]
     Active Substance: TAZOBACTAM
     Route: 041
     Dates: start: 20150503, end: 20150513

REACTIONS (2)
  - Liver injury [Not Recovered/Not Resolved]
  - Jaundice cholestatic [Not Recovered/Not Resolved]

NARRATIVE: CASE EVENT DATE: 20150516
